FAERS Safety Report 7120533-7 (Version None)
Quarter: 2010Q4

REPORT INFORMATION
  Report Type: 
  Country: None (occurrence: None)
  Receive Date: 20101124
  Receipt Date: 20101118
  Transmission Date: 20110411
  Serious: Yes (Death, Life-Threatening, Hospitalization, Other)
  Sender: FDA-Public Use
  Company Number: JP-PFIZER INC-2010138431

PATIENT
  Age: 69 Year
  Sex: Male
  Weight: 52 kg

DRUGS (12)
  1. UNASYN [Suspect]
     Indication: PNEUMONIA ASPIRATION
     Dosage: 3.0 G, 2X/DAY
     Route: 042
     Dates: start: 20101025, end: 20101101
  2. DEPAKENE [Concomitant]
     Indication: EPILEPSY
     Dosage: 400 MG, 3X/DAY
     Route: 048
     Dates: start: 20091203, end: 20101102
  3. CARBAMAZEPINE [Concomitant]
     Indication: EPILEPSY
     Dosage: 200 MG, 3X/DAY
     Route: 048
     Dates: start: 20091203, end: 20101102
  4. HALOSPOR [Concomitant]
     Indication: PNEUMONIA ASPIRATION
     Dosage: 1 G, 2X/DAY
     Route: 042
     Dates: start: 20101101, end: 20101102
  5. GOODMIN [Concomitant]
     Indication: INSOMNIA
     Dosage: 0.25 MG, 1X/DAY
     Route: 048
     Dates: start: 20100705, end: 20101025
  6. HALCION [Concomitant]
     Indication: INSOMNIA
     Dosage: 0.25 MG, 1X/DAY
     Route: 048
     Dates: start: 20101020, end: 20101025
  7. SLOWHEIM [Concomitant]
     Indication: INSOMNIA
     Dosage: 10 MG, 1X/DAY
     Route: 048
     Dates: start: 20100811, end: 20101019
  8. CALONAL [Concomitant]
     Indication: PYREXIA
     Dosage: 300 MG, SINGLE
     Route: 048
     Dates: start: 20101024, end: 20101025
  9. CALONAL [Concomitant]
     Dosage: 150 MG, SINGLE
     Route: 048
     Dates: start: 20101025, end: 20101025
  10. METILON [Concomitant]
     Indication: PYREXIA
     Dosage: 1 ML, SINGLE
     Route: 042
     Dates: start: 20101025, end: 20101025
  11. FUROSEMIDE [Concomitant]
     Indication: RENAL FAILURE ACUTE
     Dosage: ONCE TO THREE TIMED DAILY
     Route: 042
     Dates: start: 20101028, end: 20101102
  12. HEPARIN CALCIUM [Concomitant]
     Indication: DISSEMINATED INTRAVASCULAR COAGULATION
     Dosage: 0.2 ML, 3X/DAY
     Route: 042
     Dates: start: 20101030, end: 20101102

REACTIONS (3)
  - HAEMORRHAGIC DIATHESIS [None]
  - RESPIRATORY FAILURE [None]
  - THROMBOCYTOPENIA [None]
